FAERS Safety Report 7570052-9 (Version None)
Quarter: 2011Q2

REPORT INFORMATION
  Report Type: 
  Country: None (occurrence: None)
  Receive Date: 20110624
  Receipt Date: 20110606
  Transmission Date: 20111010
  Serious: No
  Sender: FDA-Public Use
  Company Number: US-B.I. PHARMACEUTICALS,INC./RIDGEFIELD-2011-BP-14792BP

PATIENT
  Age: 78 Year
  Sex: Female

DRUGS (12)
  1. TOPROL-XL [Concomitant]
     Indication: HYPERTENSION
     Dosage: 200 MG
     Route: 048
  2. ASPIRIN [Concomitant]
     Indication: TRANSIENT ISCHAEMIC ATTACK
     Dosage: 325 MG
  3. FOLIC ACID [Concomitant]
     Indication: SUPPLEMENTATION THERAPY
     Route: 048
  4. TRAMADOL HCL [Concomitant]
     Indication: BACK PAIN
     Dosage: 50 MG
     Route: 048
  5. REQUIP [Concomitant]
     Indication: RESTLESS LEGS SYNDROME
     Dosage: 0.5 MG
     Route: 048
  6. PRADAXA [Suspect]
     Indication: ATRIAL FIBRILLATION
     Dosage: 300 MG
     Route: 048
     Dates: start: 20110501
  7. LASIX [Concomitant]
     Indication: OEDEMA PERIPHERAL
     Route: 048
  8. ATARAX [Concomitant]
     Indication: PRURITUS
     Route: 048
  9. NEURONTIN [Concomitant]
     Indication: NEURALGIA
     Dosage: 300 MG
     Route: 048
  10. ASACOL [Concomitant]
     Indication: COLITIS
  11. DITROPAN [Concomitant]
     Indication: HYPERTONIC BLADDER
     Dosage: 10 MG
     Route: 048
  12. CYMBALTA [Concomitant]
     Indication: DEPRESSION
     Dosage: 60 MG
     Route: 048

REACTIONS (3)
  - BALANCE DISORDER [None]
  - MEMORY IMPAIRMENT [None]
  - ASTHENIA [None]
